FAERS Safety Report 6659665-6 (Version None)
Quarter: 2010Q1

REPORT INFORMATION
  Report Type: 
  Country: None (occurrence: None)
  Receive Date: 20100325
  Receipt Date: 20100316
  Transmission Date: 20100710
  Serious: Yes (Life-Threatening)
  Sender: FDA-Public Use
  Company Number: GB-1181241

PATIENT
  Age: 57 Year
  Sex: Female

DRUGS (9)
  1. CIPROFLOXACIN (CIPROFLOXACIN HYDROCHLORIDE) 0.3 % OPHTHALMIC SOLUTION [Suspect]
     Dosage: OPHTHALMIC
     Route: 047
     Dates: start: 20100109
  2. DARBEPOETIN ALFA (DARBEPOETIN ALFA) [Concomitant]
  3. GABAPENTIN [Concomitant]
  4. OMEPRAZOLE [Concomitant]
  5. ACETAMINOPHEN [Concomitant]
  6. PHENYTOIN [Concomitant]
  7. SALBUTAMOL (SALBUTAMOL) [Concomitant]
  8. SERETIDE (SERETIDE) [Concomitant]
  9. VENTOLIN [Concomitant]

REACTIONS (1)
  - THROMBOCYTOPENIA [None]
